FAERS Safety Report 5120042-0 (Version None)
Quarter: 2006Q3

REPORT INFORMATION
  Report Type: 
  Country: None (occurrence: None)
  Receive Date: 20060929
  Receipt Date: 20060913
  Transmission Date: 20061208
  Serious: Yes (Hospitalization)
  Sender: FDA-Public Use
  Company Number: 230336

PATIENT
  Age: 61 Year
  Sex: Male

DRUGS (11)
  1. AVASTIN [Suspect]
     Indication: GASTROINTESTINAL CARCINOMA
     Dosage: 800 MG, Q2W, INTRAVENOUS
     Route: 042
     Dates: start: 20060731
  2. ERLOTINIB (ERLOTINIB) TABLET, 150MG [Suspect]
     Indication: GASTROINTESTINAL CARCINOMA
     Dosage: 150 MG, QD, ORAL
     Route: 048
     Dates: start: 20060731
  3. CEFUROXIM (CEFUROXIME) [Concomitant]
  4. OXYCONTIN [Concomitant]
  5. PAMOL (ACETAMINOPHEN) [Concomitant]
  6. FUROSEMIDE [Concomitant]
  7. POTASSIUM CHLORIDE [Concomitant]
  8. LOSEC (OMEPRAZOLE) [Concomitant]
  9. AMLODIPINE BESYLATE [Concomitant]
  10. EMPERAL (METOCLOPRAMIDE HYDROCHLORIDE) [Concomitant]
  11. PANCREON (PANCREATIN) [Concomitant]

REACTIONS (2)
  - ABDOMINAL PAIN [None]
  - BACTERIAL SEPSIS [None]
